FAERS Safety Report 14031033 (Version 2)
Quarter: 2017Q4

REPORT INFORMATION
  Report Type: Spontaneous
  Country: BE (occurrence: BE)
  Receive Date: 20171002
  Receipt Date: 20171103
  Transmission Date: 20180321
  Serious: Yes (Other)
  Sender: FDA-Public Use
  Company Number: BE-BAYER-2017-185499

PATIENT
  Age: 59 Year
  Sex: Female

DRUGS (1)
  1. STIVARGA [Suspect]
     Active Substance: REGORAFENIB
     Indication: COLON CANCER
     Dosage: UNK
     Dates: start: 201705, end: 201709

REACTIONS (2)
  - Feeling abnormal [None]
  - Colon cancer [None]
